FAERS Safety Report 21782965 (Version 5)
Quarter: 2023Q1

REPORT INFORMATION
  Report Type: Spontaneous
  Country: JP (occurrence: JP)
  Receive Date: 20221227
  Receipt Date: 20230202
  Transmission Date: 20230417
  Serious: Yes (Hospitalization)
  Sender: FDA-Public Use
  Company Number: JP-MYE-2022M1140420AA

PATIENT
  Age: 75 Year
  Sex: Female
  Weight: 63.5 kg

DRUGS (20)
  1. CELECOXIB [Suspect]
     Active Substance: CELECOXIB
     Dosage: 100 MG, DAILY, EVERYDAY
     Route: 048
  2. ENALAPRIL MALEATE [Suspect]
     Active Substance: ENALAPRIL MALEATE
     Dosage: 10 MG, DAILY, EVERYDAY
     Route: 048
  3. SPIRONOLACTONE [Suspect]
     Active Substance: SPIRONOLACTONE
     Dosage: 50 MG, DAILY, EVERYDAY
     Route: 048
  4. TRIHEXYPHENIDYL [Suspect]
     Active Substance: TRIHEXYPHENIDYL
     Dosage: 4 MILLIGRAM EVERYDAY
     Route: 048
  5. RISPERIDONE [Suspect]
     Active Substance: RISPERIDONE
     Dosage: 2 MG, DAILY
     Route: 048
  6. SENNOSIDES [Suspect]
     Active Substance: SENNOSIDES
     Dosage: 60 MILLIGRAM EVERYDAY
     Route: 048
  7. REBAMIPIDE [Suspect]
     Active Substance: REBAMIPIDE
     Dosage: 300 MILLIGRAM EVERYDAY
     Route: 048
  8. LEVOTHYROXINE SODIUM [Suspect]
     Active Substance: LEVOTHYROXINE SODIUM
     Dosage: 50 UG, DAILY, EVERYDAY
     Route: 048
  9. AZELNIDIPINE [Suspect]
     Active Substance: AZELNIDIPINE
     Dosage: 16 MG, DAILY
     Route: 048
  10. DILTIAZEM HYDROCHLORIDE [Suspect]
     Active Substance: DILTIAZEM HYDROCHLORIDE
     Dosage: 100 MG, DAILY
     Route: 048
  11. URAPIDIL [Suspect]
     Active Substance: URAPIDIL
     Dosage: 30 MG, DAILY
     Route: 048
  12. TRICHLORMETHIAZIDE [Suspect]
     Active Substance: TRICHLORMETHIAZIDE
     Dosage: 2 MG, DAILY
     Route: 048
  13. NICORANDIL [Suspect]
     Active Substance: NICORANDIL
     Dosage: 15 MILLIGRAM EVERYDAY
     Route: 048
  14. NEXIUM [Suspect]
     Active Substance: ESOMEPRAZOLE MAGNESIUM
     Dosage: 20 MG, SINGLE, EVERYDAY
     Route: 048
  15. HALOPERIDOL [Suspect]
     Active Substance: HALOPERIDOL
     Dosage: 2 MG, SINGLE, EVERYDAY
     Route: 048
  16. ETIZOLAM [Suspect]
     Active Substance: ETIZOLAM
     Dosage: 1.5 MILLIGRAM EVERYDAY
     Route: 048
  17. CARBAMAZEPINE [Suspect]
     Active Substance: CARBAMAZEPINE
     Dosage: 100 MG, DAILY
     Route: 048
  18. LOXOPROFEN SODIUM [Suspect]
     Active Substance: LOXOPROFEN SODIUM
     Dosage: 180 MILLIGRAM EVERYDAY
     Route: 048
  19. METHYLCOBALAMIN [Suspect]
     Active Substance: METHYLCOBALAMIN
     Dosage: 1500 MICROGRAM EVERYDAY
     Route: 048
  20. MINODRONIC ACID [Suspect]
     Active Substance: MINODRONIC ACID
     Dosage: 50 MG, MONTHLY
     Route: 048

REACTIONS (2)
  - Wernicke^s encephalopathy [Recovering/Resolving]
  - Hypoxia [Unknown]
